FAERS Safety Report 6699793-2 (Version None)
Quarter: 2010Q2

REPORT INFORMATION
  Report Type: 
  Country: None (occurrence: None)
  Receive Date: 20100428
  Receipt Date: 20100421
  Transmission Date: 20101027
  Serious: Yes (Hospitalization)
  Sender: FDA-Public Use
  Company Number: DE-TYCO HEALTHCARE/MALLINCKRODT-T201001065

PATIENT
  Sex: Male

DRUGS (2)
  1. OPTIRAY 350 [Suspect]
     Indication: COMPUTERISED TOMOGRAM
     Dosage: 123 ML, SINGLE
     Route: 042
     Dates: start: 20100217, end: 20100217
  2. PERITRAST [Suspect]
     Indication: COMPUTERISED TOMOGRAM
     Dosage: 30 ML/1L
     Route: 048
     Dates: start: 20100217, end: 20100217

REACTIONS (1)
  - RASH MACULO-PAPULAR [None]
